FAERS Safety Report 8105841-5 (Version None)
Quarter: 2012Q1

REPORT INFORMATION
  Report Type: 
  Country: None (occurrence: None)
  Receive Date: 20120202
  Receipt Date: 20120126
  Transmission Date: 20120608
  Serious: Yes (Hospitalization)
  Sender: FDA-Public Use
  Company Number: US-BIOGENIDEC-2011BI015186

PATIENT
  Age: 63 Year
  Sex: Female
  Weight: 62 kg

DRUGS (17)
  1. IBUPROFEN (ADVIL) [Concomitant]
  2. ZANAFLEX [Concomitant]
     Indication: MUSCLE SPASTICITY
     Route: 048
     Dates: start: 20070312
  3. CRANBERRY [Concomitant]
     Route: 048
  4. TYSABRI [Suspect]
     Indication: MULTIPLE SCLEROSIS
     Route: 042
     Dates: start: 20070613
  5. ADVAIR DISKUS 100/50 [Concomitant]
     Route: 055
  6. FEXOFENADINE [Concomitant]
  7. MULTIPLE VITAMIN [Concomitant]
     Route: 048
  8. CALTRATE [Concomitant]
     Route: 048
  9. NEXIUM [Concomitant]
     Indication: GASTROOESOPHAGEAL REFLUX DISEASE
     Dates: start: 20090716
  10. SANCTURA [Concomitant]
     Route: 048
  11. ADVAIR DISKUS 100/50 [Concomitant]
     Route: 055
  12. BONIVA [Concomitant]
     Indication: OSTEOPOROSIS
     Dates: start: 20090716
  13. SINGULAIR [Concomitant]
     Route: 048
  14. CITRACAL [Concomitant]
  15. CITRUCEL [Concomitant]
     Indication: CONSTIPATION
     Dates: start: 20090716
  16. COLACE [Concomitant]
     Route: 048
  17. TROSPIUM CHLORIDE [Concomitant]
     Indication: NEUROGENIC BLADDER
     Dates: start: 20101011

REACTIONS (1)
  - ADENOCARCINOMA [None]
